FAERS Safety Report 5376842-5 (Version None)
Quarter: 2007Q3

REPORT INFORMATION
  Report Type: 
  Country: None (occurrence: None)
  Receive Date: 20070703
  Receipt Date: 20070622
  Transmission Date: 20080115
  Serious: Yes (Hospitalization)
  Sender: FDA-Public Use
  Company Number: US-ABBOTT-07P-163-0372925-00

PATIENT
  Sex: Male
  Weight: 47.216 kg

DRUGS (3)
  1. HUMIRA [Suspect]
     Indication: CROHN'S DISEASE
     Route: 058
     Dates: start: 20070101
  2. HYDROCODONE BITARTRATE [Concomitant]
     Indication: DRUG USE FOR UNKNOWN INDICATION
  3. STEROIDS [Concomitant]
     Indication: DRUG USE FOR UNKNOWN INDICATION

REACTIONS (3)
  - ABDOMINAL PAIN UPPER [None]
  - INTESTINAL OBSTRUCTION [None]
  - NAUSEA [None]
